FAERS Safety Report 11931792 (Version 1)
Quarter: 2016Q1

REPORT INFORMATION
  Report Type: Spontaneous
  Country: FI (occurrence: FI)
  Receive Date: 20160120
  Receipt Date: 20160120
  Transmission Date: 20160526
  Serious: Yes (Other)
  Sender: FDA-Public Use
  Company Number: FI-SA-2015SA205451

PATIENT
  Age: 75 Year
  Sex: Male

DRUGS (9)
  1. LIPITOR [Concomitant]
     Active Substance: ATORVASTATIN CALCIUM
  2. JANUVIA [Concomitant]
     Active Substance: SITAGLIPTIN PHOSPHATE
  3. PRADAXA [Concomitant]
     Active Substance: DABIGATRAN ETEXILATE MESYLATE
  4. SELOKENZOC [Concomitant]
     Active Substance: METOPROLOL SUCCINATE
     Dosage: DOSE: ONE AND HALF DOSE PER DAY
  5. LANTUS [Suspect]
     Active Substance: INSULIN GLARGINE
     Indication: DIABETES MELLITUS MANAGEMENT
     Route: 065
     Dates: start: 201509, end: 20151124
  6. BETOLVEX [Concomitant]
     Active Substance: CYANOCOBALAMIN
  7. LANTUS [Suspect]
     Active Substance: INSULIN GLARGINE
     Indication: DIABETES MELLITUS MANAGEMENT
     Route: 065
     Dates: start: 201512
  8. METFORMIN [Concomitant]
     Active Substance: METFORMIN HYDROCHLORIDE
     Dates: end: 201506
  9. ENALAPRIL [Concomitant]
     Active Substance: ENALAPRIL
     Dosage: DOSE: 1 DOSE TWICE PER DAY

REACTIONS (7)
  - Vision blurred [Unknown]
  - Retinal vascular disorder [Unknown]
  - Glycosylated haemoglobin increased [Unknown]
  - Visual acuity reduced [Unknown]
  - Visual field defect [Unknown]
  - Cyanopsia [Unknown]
  - Headache [Unknown]

NARRATIVE: CASE EVENT DATE: 20151126
